FAERS Safety Report 7016509-0 (Version None)
Quarter: 2010Q3

REPORT INFORMATION
  Report Type: 
  Country: None (occurrence: None)
  Receive Date: 20100927
  Receipt Date: 20100922
  Transmission Date: 20110219
  Serious: Yes (Hospitalization)
  Sender: FDA-Public Use
  Company Number: A0802675A

PATIENT
  Age: 51 Year
  Sex: Female
  Weight: 113.6 kg

DRUGS (11)
  1. AVANDIA [Suspect]
     Dosage: 8MG TWICE PER DAY
     Route: 048
     Dates: start: 20020101, end: 20051101
  2. AVANDAMET [Suspect]
     Route: 048
     Dates: start: 20031202
  3. ADVAIR DISKUS 100/50 [Concomitant]
  4. LIPITOR [Concomitant]
  5. WELLBUTRIN SR [Concomitant]
  6. ALBUTEROL [Concomitant]
  7. PAXIL [Concomitant]
  8. AVAPRO [Concomitant]
  9. ZOCOR [Concomitant]
  10. ZESTRIL [Concomitant]
  11. GLUCOPHAGE [Concomitant]

REACTIONS (4)
  - CARDIAC DISORDER [None]
  - CARDIOVASCULAR DISORDER [None]
  - CEREBROVASCULAR ACCIDENT [None]
  - ECG SIGNS OF MYOCARDIAL ISCHAEMIA [None]
